FAERS Safety Report 23396111 (Version 1)
Quarter: 2024Q1

REPORT INFORMATION
  Report Type: Spontaneous
  Country: BG (occurrence: BG)
  Receive Date: 20240112
  Receipt Date: 20240112
  Transmission Date: 20240410
  Serious: Yes (Hospitalization, Other)
  Sender: FDA-Public Use
  Company Number: BG-SUN PHARMACEUTICAL INDUSTRIES LTD-2023R1-426501

PATIENT
  Age: 86 Year
  Sex: Male

DRUGS (3)
  1. BISOPROLOL [Suspect]
     Active Substance: BISOPROLOL\BISOPROLOL FUMARATE
     Indication: Skin cancer
     Dosage: 5 MILLIGRAM
     Route: 065
  2. VENLAFAXINE [Suspect]
     Active Substance: VENLAFAXINE HYDROCHLORIDE
     Indication: Skin cancer
     Dosage: 75 MILLIGRAM
     Route: 065
  3. OLANZAPINE [Suspect]
     Active Substance: OLANZAPINE
     Indication: Skin cancer
     Dosage: 5 MILLIGRAM
     Route: 065

REACTIONS (2)
  - Basal cell carcinoma [Unknown]
  - Product contamination [Not Recovered/Not Resolved]
